FAERS Safety Report 6074630-8 (Version None)
Quarter: 2009Q1

REPORT INFORMATION
  Report Type: 
  Country: None (occurrence: None)
  Receive Date: 20090209
  Receipt Date: 20090209
  Transmission Date: 20090719
  Serious: Yes (Other)
  Sender: FDA-Public Use
  Company Number: None

PATIENT
  Age: 21 Year
  Sex: Female
  Weight: 52.1637 kg

DRUGS (3)
  1. CYMBALTA [Suspect]
     Indication: GENERALISED ANXIETY DISORDER
     Dosage: 30MG TWICE DAILY PO
     Route: 048
     Dates: start: 20080401, end: 20080801
  2. EFFEXOR [Suspect]
     Indication: DEPRESSION
     Dosage: 75MG ONCE DAILY PO
     Route: 048
     Dates: start: 20080801, end: 20090206
  3. PAXIL [Concomitant]

REACTIONS (14)
  - ANHEDONIA [None]
  - ARTHRALGIA [None]
  - CRYING [None]
  - DEPRESSION [None]
  - DIZZINESS [None]
  - FEAR [None]
  - FEELING ABNORMAL [None]
  - IRRITABILITY [None]
  - MOVEMENT DISORDER [None]
  - MYALGIA [None]
  - PARAESTHESIA [None]
  - THINKING ABNORMAL [None]
  - WEIGHT INCREASED [None]
  - WITHDRAWAL SYNDROME [None]
